FAERS Safety Report 26136513 (Version 1)
Quarter: 2025Q4

REPORT INFORMATION
  Report Type: Report from Study
  Country: PK (occurrence: PK)
  Receive Date: 20251209
  Receipt Date: 20251209
  Transmission Date: 20260117
  Serious: Yes (Other)
  Sender: ROCHE
  Company Number: PK-ROCHE-10000451251

PATIENT
  Age: 67 Year
  Sex: Female

DRUGS (1)
  1. RITUXIMAB [Suspect]
     Active Substance: RITUXIMAB
     Indication: Pemphigus
     Dosage: SOLUTION
     Route: 042
     Dates: start: 20211012

REACTIONS (2)
  - Pemphigus [Unknown]
  - Off label use [Unknown]

NARRATIVE: CASE EVENT DATE: 20251128
